FAERS Safety Report 14037084 (Version 1)
Quarter: 2017Q4

REPORT INFORMATION
  Report Type: Spontaneous
  Country: US (occurrence: US)
  Receive Date: 20171004
  Receipt Date: 20171004
  Transmission Date: 20180321
  Serious: Yes (Hospitalization, Other)
  Sender: FDA-Public Use
  Company Number: US-GEMINI LABORATORIES, LLC-GEM201709-000011

PATIENT
  Age: 71 Year
  Sex: Female
  Weight: 61.2 kg

DRUGS (4)
  1. NOVOLOG [Concomitant]
     Active Substance: INSULIN ASPART
     Dates: start: 2001
  2. PRANDIN [Suspect]
     Active Substance: REPAGLINIDE
     Indication: TYPE 2 DIABETES MELLITUS
     Route: 048
     Dates: start: 2001, end: 201706
  3. PRANDIN [Suspect]
     Active Substance: REPAGLINIDE
     Route: 048
     Dates: start: 20170918
  4. LANTUS [Concomitant]
     Active Substance: INSULIN GLARGINE
     Dates: start: 2001

REACTIONS (2)
  - Nephrolithiasis [Recovered/Resolved]
  - Chronic kidney disease [Not Recovered/Not Resolved]

NARRATIVE: CASE EVENT DATE: 2010
